FAERS Safety Report 6086323-1 (Version None)
Quarter: 2009Q1

REPORT INFORMATION
  Report Type: 
  Country: None (occurrence: None)
  Receive Date: 20090220
  Receipt Date: 20090217
  Transmission Date: 20090719
  Serious: Yes (Hospitalization)
  Sender: FDA-Public Use
  Company Number: US-B.I. PHARMACEUTICALS,INC./RIDGEFIELD-2009-BP-01974BP

PATIENT
  Sex: Male

DRUGS (6)
  1. SPIRIVA [Suspect]
     Indication: ASTHMA
     Dosage: 18MCG
     Route: 055
     Dates: start: 20080201
  2. COMBIVENT [Concomitant]
     Indication: ASTHMA
  3. FLOVENT HFA [Concomitant]
     Indication: ASTHMA
  4. LISINOPRIL [Concomitant]
     Indication: HYPERTENSION
  5. SIMVASTATIN [Concomitant]
     Indication: BLOOD CHOLESTEROL INCREASED
  6. TRIAMTERENE HCT [Concomitant]
     Indication: HYPERTENSION

REACTIONS (2)
  - ARTHRITIS [None]
  - CHONDROPATHY [None]
